FAERS Safety Report 5786060-4 (Version None)
Quarter: 2008Q2

REPORT INFORMATION
  Report Type: 
  Country: None (occurrence: None)
  Receive Date: 20080624
  Receipt Date: 20080613
  Transmission Date: 20081010
  Serious: Yes (Other)
  Sender: FDA-Public Use
  Company Number: CN-ELI_LILLY_AND_COMPANY-HK200806003734

PATIENT
  Age: 14 Year
  Sex: Female

DRUGS (4)
  1. GEMCITABINE HCL [Suspect]
     Indication: ADENOCARCINOMA OF THE CERVIX
     Dosage: 1000 MG/M2, DAY 1 AND 8 OF 3 WEEKLY CYCLE
  2. CARBOPLATIN [Concomitant]
     Indication: ADENOCARCINOMA OF THE CERVIX
     Dosage: 4 AUC,  DAY 1 OF THREE WEEKLY CYCLE
  3. CARBOPLATIN [Concomitant]
     Dosage: 6 AUC, UNKNOWN
  4. PACLITAXEL [Concomitant]
     Indication: ADENOCARCINOMA OF THE CERVIX
     Dosage: 175 MG/M2, UNKNOWN

REACTIONS (2)
  - GENERAL PHYSICAL HEALTH DETERIORATION [None]
  - INTESTINAL OBSTRUCTION [None]
